FAERS Safety Report 5087155-3 (Version None)
Quarter: 2006Q3

REPORT INFORMATION
  Report Type: 
  Country: None (occurrence: None)
  Receive Date: 20060821
  Receipt Date: 20060810
  Transmission Date: 20061208
  Serious: Yes (Other)
  Sender: FDA-Public Use
  Company Number: 2006097742

PATIENT
  Age: 65 Year
  Sex: Male
  Weight: 92.9874 kg

DRUGS (5)
  1. NATURAL CITRUS LISTERINE [Suspect]
     Dosage: 1 AND 1/2 CAPFULS, ONCE, ORAL
     Route: 048
     Dates: start: 20060808, end: 20060808
  2. ASPIRIN [Concomitant]
  3. ROSUVASTATIN [Concomitant]
  4. ATENOLOL [Concomitant]
  5. NIFEDIPINE [Concomitant]

REACTIONS (4)
  - JAW DISORDER [None]
  - OEDEMA MOUTH [None]
  - SWELLING [None]
  - TRISMUS [None]
